FAERS Safety Report 9305600 (Version 1)
Quarter: 2013Q1

REPORT INFORMATION
  Report Type: Spontaneous
  Country: DE (occurrence: None)
  Receive Date: 20130104
  Receipt Date: 20130104
  Transmission Date: 20140127
  Serious: Yes (Hospitalization, Other)
  Sender: FDA-Public Use
  Company Number: DE-010083

PATIENT
  Age: 80 Year
  Sex: Male
  Weight: 64 kg

DRUGS (3)
  1. DEGARELIX [Suspect]
     Indication: PROSTATE CANCER
     Dosage: ONCE A MONTH SUBCUTANEUS.
     Dates: start: 20111130, end: 20120828
  2. DEGARELIX [Suspect]
     Indication: METASTASES TO BONE
     Dosage: ONCE A MONTH SUBCUTANEUS.
     Dates: start: 20111130, end: 20120828
  3. XGEVA [Suspect]
     Route: 058
     Dates: start: 20120101, end: 20120828

REACTIONS (12)
  - Transient ischaemic attack [None]
  - Aortic aneurysm [None]
  - Microangiopathy [None]
  - Reversible ischaemic neurological deficit [None]
  - Cerebral arteriosclerosis [None]
  - Muscular weakness [None]
  - Dysarthria [None]
  - VIIth nerve paralysis [None]
  - Gait disturbance [None]
  - Vertigo [None]
  - Ataxia [None]
  - Metastases to bone [None]
